FAERS Safety Report 4513585-1 (Version None)
Quarter: 2004Q4

REPORT INFORMATION
  Report Type: 
  Country: None (occurrence: None)
  Receive Date: 20041130
  Receipt Date: 20040806
  Transmission Date: 20050328
  Serious: No
  Sender: FDA-Public Use
  Company Number: US-GLAXOSMITHKLINE-A0521284A

PATIENT
  Age: 69 Year
  Sex: Female

DRUGS (8)
  1. WELLBUTRIN XL [Suspect]
     Indication: DEPRESSION
     Dosage: 150MG PER DAY
     Route: 048
  2. PROZAC [Concomitant]
  3. CARDIZEM [Concomitant]
  4. PRILOSEC [Concomitant]
  5. BEXTRA [Concomitant]
  6. TRICOR [Concomitant]
  7. PREMARIN [Concomitant]
  8. ZELNORM [Concomitant]

REACTIONS (4)
  - AGITATION [None]
  - COLD SWEAT [None]
  - NAUSEA [None]
  - NERVOUSNESS [None]
